FAERS Safety Report 8593064-5 (Version None)
Quarter: 2012Q3

REPORT INFORMATION
  Report Type: 
  Country: None (occurrence: None)
  Receive Date: 20120814
  Receipt Date: 20120807
  Transmission Date: 20120928
  Serious: Yes (Other)
  Sender: FDA-Public Use
  Company Number: FI-GLAXOSMITHKLINE-B0820318A

PATIENT
  Sex: Female

DRUGS (7)
  1. XGEVA [Concomitant]
     Indication: BONE DISORDER
     Route: 058
     Dates: start: 20120510, end: 20120719
  2. DEXAMETHASONE [Concomitant]
     Indication: METASTASES TO CENTRAL NERVOUS SYSTEM
     Route: 048
     Dates: start: 20120104
  3. TRILEPTAL [Concomitant]
     Indication: EPILEPSY
     Dosage: 450MG PER DAY
     Route: 048
     Dates: start: 20120228
  4. XELODA [Concomitant]
     Indication: BREAST CANCER METASTATIC
     Route: 048
     Dates: start: 20120128, end: 20120719
  5. ZOMETA [Concomitant]
     Indication: BONE DISORDER
     Route: 042
     Dates: start: 20110816, end: 20120510
  6. LAPATINIB [Suspect]
     Indication: BREAST CANCER METASTATIC
     Route: 048
     Dates: start: 20120128, end: 20120717
  7. PANTOPRAZOLE [Concomitant]
     Indication: PROPHYLAXIS
     Dosage: 40MG PER DAY
     Route: 048
     Dates: start: 20120104

REACTIONS (12)
  - METASTASES TO CENTRAL NERVOUS SYSTEM [None]
  - LUNG DISORDER [None]
  - BREAST CANCER METASTATIC [None]
  - PLEURAL EFFUSION [None]
  - BRAIN OEDEMA [None]
  - OBLITERATIVE BRONCHIOLITIS [None]
  - INFLAMMATION [None]
  - EPILEPSY [None]
  - DYSPNOEA [None]
  - HEADACHE [None]
  - CUSHINGOID [None]
  - ABDOMINAL SYMPTOM [None]
